FAERS Safety Report 10070112 (Version 1)
Quarter: 2014Q2

REPORT INFORMATION
  Report Type: Spontaneous
  Country: US (occurrence: None)
  Receive Date: 20140409
  Receipt Date: 20140409
  Transmission Date: 20141212
  Serious: Yes (Hospitalization)
  Sender: FDA-Public Use
  Company Number: None

PATIENT
  Sex: 0

DRUGS (2)
  1. IDARUBICIN [Suspect]
     Indication: ACUTE MYELOID LEUKAEMIA
     Dosage: 12MG/M2 (18MG/DAY) DAILY X3 INTRAVENOUS
     Route: 042
     Dates: start: 20131211, end: 20131213
  2. CYTARABINE [Suspect]
     Indication: ACUTE MYELOID LEUKAEMIA
     Dosage: 100MG/M2 (155MG/DAY) DAILY X7 INTRAVENOUS
     Route: 042
     Dates: start: 20131211, end: 20131213

REACTIONS (13)
  - Neutropenic sepsis [None]
  - Septic shock [None]
  - Enteritis [None]
  - Multi-organ failure [None]
  - Dialysis [None]
  - Generalised oedema [None]
  - Dermatitis bullous [None]
  - Conjunctival oedema [None]
  - Cardiomyopathy [None]
  - Acute respiratory distress syndrome [None]
  - Pancytopenia [None]
  - Ischaemic hepatitis [None]
  - Gangrene [None]
